FAERS Safety Report 6012385-3 (Version None)
Quarter: 2008Q4

REPORT INFORMATION
  Report Type: 
  Country: None (occurrence: None)
  Receive Date: 20081218
  Receipt Date: 20081203
  Transmission Date: 20090506
  Serious: No
  Sender: FDA-Public Use
  Company Number: US-ASTRAZENECA-2008UW21014

PATIENT
  Age: 64 Year
  Sex: Female
  Weight: 54.4 kg

DRUGS (4)
  1. SYMBICORT [Suspect]
     Indication: EMPHYSEMA
     Dosage: 160/4.5 MCG (2 PUFFS TWICE A DAY)
     Route: 055
     Dates: start: 20080601
  2. NORPACE CR [Concomitant]
  3. CLARITIN-D [Concomitant]
  4. XYZAL [Concomitant]

REACTIONS (1)
  - DYSPNOEA [None]
